FAERS Safety Report 4528502-8 (Version None)
Quarter: 2004Q4

REPORT INFORMATION
  Report Type: 
  Country: None (occurrence: None)
  Receive Date: 20041216
  Receipt Date: 20041206
  Transmission Date: 20050328
  Serious: Yes (Hospitalization)
  Sender: FDA-Public Use
  Company Number: FR-BRISTOL-MYERS SQUIBB COMPANY-12786463

PATIENT
  Age: 75 Year
  Sex: Female

DRUGS (11)
  1. APROVEL [Suspect]
     Indication: HYPERTENSION
     Route: 048
     Dates: end: 20040812
  2. LOXAPINE HCL [Suspect]
     Indication: HYPERTENSION
     Route: 048
     Dates: end: 20040812
  3. LEVOTHYROX [Concomitant]
     Dates: end: 20040812
  4. PROPOFOL [Concomitant]
     Dates: end: 20040812
  5. AMLOR [Concomitant]
  6. ATHYMIL [Concomitant]
  7. LYSANXIA [Concomitant]
  8. STILNOX [Concomitant]
  9. METEOSPASMYL [Concomitant]
     Dates: end: 20040812
  10. LUBENTYL [Concomitant]
     Dates: end: 20040812
  11. IMPORTAL [Concomitant]
     Dates: end: 20040812

REACTIONS (4)
  - BRADYPHRENIA [None]
  - COGNITIVE DISORDER [None]
  - HYPONATRAEMIA [None]
  - POLYDIPSIA PSYCHOGENIC [None]
